FAERS Safety Report 4875989-7 (Version None)
Quarter: 2005Q4

REPORT INFORMATION
  Report Type: 
  Country: None (occurrence: None)
  Receive Date: 20051206
  Receipt Date: 20051024
  Transmission Date: 20060501
  Serious: No
  Sender: FDA-Public Use
  Company Number: IND-AE-05-SAN-066

PATIENT
  Age: 63 Year
  Sex: Female

DRUGS (2)
  1. SANCTURA [Suspect]
     Indication: HYPERTONIC BLADDER
     Dosage: 20 MG-QD-ORAL
     Route: 048
     Dates: start: 20050906
  2. PAXIL [Concomitant]

REACTIONS (2)
  - DRY MOUTH [None]
  - TONGUE DISCOLOURATION [None]
